FAERS Safety Report 7536363-8 (Version None)
Quarter: 2011Q2

REPORT INFORMATION
  Report Type: 
  Country: None (occurrence: None)
  Receive Date: 20110524
  Receipt Date: 20110323
  Transmission Date: 20111010
  Serious: Yes (Hospitalization)
  Sender: FDA-Public Use
  Company Number: 029898

PATIENT
  Sex: Female
  Weight: 71.2147 kg

DRUGS (9)
  1. LANTUS [Concomitant]
  2. CYMBALTA [Concomitant]
  3. HYDROCHLOROTHIAZIDE [Concomitant]
  4. PENTASA [Concomitant]
  5. PREDNISONE [Concomitant]
  6. NOVOLOG [Concomitant]
  7. INSULIN [Concomitant]
  8. CIMZIA [Suspect]
     Indication: CROHN'S DISEASE
     Dosage: (400 MG 1X/MONTH SUBCUTANEOUS)
     Route: 058
     Dates: start: 20101101
  9. LEXOXYL [Concomitant]

REACTIONS (3)
  - HYPOTENSION [None]
  - INTESTINAL OBSTRUCTION [None]
  - FLATULENCE [None]
